FAERS Safety Report 10496713 (Version 2)
Quarter: 2015Q1

REPORT INFORMATION
  Report Type: Spontaneous
  Country: PT (occurrence: PT)
  Receive Date: 20141006
  Receipt Date: 20150303
  Transmission Date: 20150720
  Serious: Yes (Disabling)
  Sender: FDA-Public Use
  Company Number: PT-ORION CORPORATION ORION PHARMA-14_00000976

PATIENT
  Age: 70 Year
  Sex: Female
  Weight: 68 kg

DRUGS (16)
  1. PRETERAX [Concomitant]
     Active Substance: INDAPAMIDE\PERINDOPRIL
     Indication: HYPERTENSION
     Route: 048
  2. ROPINIROL TEVA [Suspect]
     Active Substance: ROPINIROLE HYDROCHLORIDE
     Indication: PARKINSON^S DISEASE
     Dosage: STRENGTH: 8 MG
     Route: 048
  3. LOSEC [Concomitant]
     Active Substance: OMEPRAZOLE
     Route: 048
  4. RIVOTRIL [Suspect]
     Active Substance: CLONAZEPAM
     Indication: SLEEP DISORDER
     Dosage: STRENGTH: 2 MG
     Route: 048
     Dates: start: 20140826
  5. MEMANTINA TEVA [Suspect]
     Active Substance: MEMANTINE
     Dosage: STRENGTH: 10 MG
     Route: 048
     Dates: start: 20140905
  6. ROPINIROL TEVA [Suspect]
     Active Substance: ROPINIROLE HYDROCHLORIDE
     Dosage: STRENGTH: 8 MG
     Route: 048
  7. STALEVO [Suspect]
     Active Substance: CARBIDOPA\ENTACAPONE\LEVODOPA
     Dosage: STRENGTH: 200/50/200
     Route: 048
  8. MEMANTINA TEVA [Suspect]
     Active Substance: MEMANTINE
     Indication: DEMENTIA ALZHEIMER^S TYPE
     Dosage: STRENGTH: 10 MG
     Route: 048
  9. ROPINIROL TEVA [Suspect]
     Active Substance: ROPINIROLE HYDROCHLORIDE
     Dosage: STRENGTH: 8 MG
     Route: 048
     Dates: start: 20140827
  10. SIMVASTATIN. [Concomitant]
     Active Substance: SIMVASTATIN
     Indication: HYPERCHOLESTEROLAEMIA
     Route: 048
  11. ACTONEL [Concomitant]
     Active Substance: RISEDRONATE SODIUM
     Route: 065
  12. STALEVO [Suspect]
     Active Substance: CARBIDOPA\ENTACAPONE\LEVODOPA
     Indication: PROGRESSIVE SUPRANUCLEAR PALSY
     Dosage: STRENGTH: 200/50/200 MG (IN MORNING)
     Route: 048
  13. EUCREAS [Concomitant]
     Active Substance: METFORMIN HYDROCHLORIDE\VILDAGLIPTIN
     Indication: TYPE 2 DIABETES MELLITUS
     Dosage: STRENGTH: 50/850 MG
     Route: 048
  14. METFORMINA GENERIS [Concomitant]
     Indication: TYPE 2 DIABETES MELLITUS
     Dosage: STRENGTH: 500 MG
     Route: 048
  15. GENEXIN [Concomitant]
     Indication: DEPRESSION
     Route: 048
  16. STALEVO [Suspect]
     Active Substance: CARBIDOPA\ENTACAPONE\LEVODOPA
     Dosage: STRENGTH: 100/25/200 MG (AT LUNCH AND EVENING)
     Route: 048
     Dates: start: 20140905, end: 20140918

REACTIONS (5)
  - Apathy [Recovered/Resolved]
  - Product use issue [Unknown]
  - Asthenia [Recovered/Resolved]
  - Abasia [Not Recovered/Not Resolved]
  - Aphasia [Not Recovered/Not Resolved]

NARRATIVE: CASE EVENT DATE: 20140906
